FAERS Safety Report 16926473 (Version 3)
Quarter: 2019Q4

REPORT INFORMATION
  Report Type: Spontaneous
  Country: US (occurrence: US)
  Receive Date: 20191016
  Receipt Date: 20191230
  Transmission Date: 20200122
  Serious: No
  Sender: FDA-Public Use
  Company Number: US-SA-2019SA282515

PATIENT
  Age: 48 Year
  Sex: Female

DRUGS (2)
  1. DUPIXENT [Suspect]
     Active Substance: DUPILUMAB
     Dosage: 600 MG, 1X
     Route: 058
     Dates: start: 201909, end: 201909
  2. DUPIXENT [Suspect]
     Active Substance: DUPILUMAB
     Dosage: 300 MG, QOW
     Route: 058
     Dates: start: 2019

REACTIONS (8)
  - Fatigue [Unknown]
  - Bronchitis [Unknown]
  - Nausea [Unknown]
  - Headache [Unknown]
  - Condition aggravated [Unknown]
  - Throat irritation [Unknown]
  - Pruritus [Unknown]
  - Respiratory tract irritation [Unknown]

NARRATIVE: CASE EVENT DATE: 2019
